FAERS Safety Report 4801489-6 (Version None)
Quarter: 2005Q4

REPORT INFORMATION
  Report Type: 
  Country: None (occurrence: None)
  Receive Date: 20051018
  Receipt Date: 20051006
  Transmission Date: 20060501
  Serious: Yes (Hospitalization)
  Sender: FDA-Public Use
  Company Number: US-JNJFOC-20051001791

PATIENT
  Sex: Female
  Weight: 88.45 kg

DRUGS (8)
  1. INFLIXIMAB [Suspect]
     Indication: RHEUMATOID ARTHRITIS
     Route: 042
  2. ACCUPRIL [Concomitant]
  3. NORVASC [Concomitant]
  4. PREDNISONE [Concomitant]
  5. ZANTAC [Concomitant]
  6. CALCIUM + D [Concomitant]
  7. PROZAC [Concomitant]
  8. VALTREX [Concomitant]
     Indication: HERPES ZOSTER

REACTIONS (3)
  - HERPES ZOSTER [None]
  - NAUSEA [None]
  - VOMITING [None]
